FAERS Safety Report 20189759 (Version 1)
Quarter: 2021Q4

REPORT INFORMATION
  Report Type: Spontaneous
  Country: US (occurrence: US)
  Receive Date: 20211215
  Receipt Date: 20211215
  Transmission Date: 20220303
  Serious: No
  Sender: FDA-Public Use
  Company Number: US-JNJFOC-20211156678

PATIENT

DRUGS (2)
  1. TYLENOL [Suspect]
     Active Substance: ACETAMINOPHEN
     Indication: Arthritis
     Route: 065
  2. IBUPROFEN [Concomitant]
     Active Substance: IBUPROFEN
     Indication: Arthritis
     Route: 065

REACTIONS (1)
  - Drug ineffective [Unknown]
